FAERS Safety Report 11892589 (Version 1)
Quarter: 2016Q1

REPORT INFORMATION
  Report Type: Spontaneous
  Country: US (occurrence: US)
  Receive Date: 20160106
  Receipt Date: 20160106
  Transmission Date: 20160526
  Serious: No
  Sender: FDA-Public Use
  Company Number: US-JNJFOC-20151211324

PATIENT

DRUGS (1)
  1. HALDOL [Suspect]
     Active Substance: HALOPERIDOL
     Indication: SCHIZOPHRENIA
     Route: 065

REACTIONS (7)
  - Myalgia [Unknown]
  - Pain in jaw [Unknown]
  - Jaw disorder [Unknown]
  - Muscle spasms [Unknown]
  - Muscle tightness [Unknown]
  - Muscle contracture [Unknown]
  - Tension [Unknown]
